FAERS Safety Report 8529296-1 (Version None)
Quarter: 2012Q3

REPORT INFORMATION
  Report Type: 
  Country: None (occurrence: None)
  Receive Date: 20120723
  Receipt Date: 20120716
  Transmission Date: 20120928
  Serious: No
  Sender: FDA-Public Use
  Company Number: US-PFIZER INC-2012172147

PATIENT
  Sex: Female

DRUGS (1)
  1. PREMPRO [Suspect]
     Dosage: UNK

REACTIONS (7)
  - PRURITUS [None]
  - IRRITABILITY [None]
  - OEDEMA PERIPHERAL [None]
  - JOINT SWELLING [None]
  - WEIGHT INCREASED [None]
  - METRORRHAGIA [None]
  - BREAST ENLARGEMENT [None]
